FAERS Safety Report 7499375-9 (Version None)
Quarter: 2011Q2

REPORT INFORMATION
  Report Type: 
  Country: None (occurrence: None)
  Receive Date: 20110524
  Receipt Date: 20110518
  Transmission Date: 20111010
  Serious: Yes (Other)
  Sender: FDA-Public Use
  Company Number: TR-SANOFI-AVENTIS-2011SA029121

PATIENT
  Age: 63 Year
  Sex: Female

DRUGS (1)
  1. ARAVA [Suspect]
     Indication: RHEUMATOID ARTHRITIS
     Dosage: TAKEN FROM: 15 DAYS AGO
     Route: 048
     Dates: start: 20110425

REACTIONS (2)
  - HEADACHE [None]
  - RESPIRATORY DISTRESS [None]
